FAERS Safety Report 8421056-5 (Version None)
Quarter: 2012Q2

REPORT INFORMATION
  Report Type: 
  Country: None (occurrence: None)
  Receive Date: 20120608
  Receipt Date: 20120604
  Transmission Date: 20120825
  Serious: Yes (Hospitalization, Other)
  Sender: FDA-Public Use
  Company Number: BR-US-EMD SERONO, INC.-7112616

PATIENT
  Sex: Female

DRUGS (6)
  1. AMYTRIL [Concomitant]
     Indication: PRODUCT USED FOR UNKNOWN INDICATION
  2. GABANEURIN (GABAPENTIN) [Concomitant]
     Indication: PRODUCT USED FOR UNKNOWN INDICATION
  3. REBIF [Suspect]
     Indication: RELAPSING-REMITTING MULTIPLE SCLEROSIS
     Dates: start: 20100528, end: 20120405
  4. REBIF [Suspect]
     Dates: start: 20120401
  5. VITAMIN TAB [Concomitant]
     Indication: PRODUCT USED FOR UNKNOWN INDICATION
  6. ALPRAZOLAM [Concomitant]
     Indication: PRODUCT USED FOR UNKNOWN INDICATION

REACTIONS (12)
  - DIABETES MELLITUS [None]
  - DRY MOUTH [None]
  - MULTIPLE SCLEROSIS RELAPSE [None]
  - SYNCOPE [None]
  - NEURALGIA [None]
  - SKIN DISCOLOURATION [None]
  - URINARY INCONTINENCE [None]
  - LOSS OF CONSCIOUSNESS [None]
  - CONVULSION [None]
  - THROMBOSIS [None]
  - COGNITIVE DISORDER [None]
  - FAECAL INCONTINENCE [None]
